FAERS Safety Report 25661809 (Version 1)
Quarter: 2025Q3

REPORT INFORMATION
  Report Type: Spontaneous
  Country: EU (occurrence: EU)
  Receive Date: 20250809
  Receipt Date: 20250809
  Transmission Date: 20251021
  Serious: Yes (Life-Threatening)
  Sender: CELLTRION
  Company Number: EU-ROCHE-10000296155

PATIENT

DRUGS (1)
  1. RITUXIMAB [Suspect]
     Active Substance: RITUXIMAB
     Indication: Product used for unknown indication
     Route: 065

REACTIONS (2)
  - Gastrointestinal disorder [Unknown]
  - Illness [Unknown]
